FAERS Safety Report 11349923 (Version 1)
Quarter: 2015Q3

REPORT INFORMATION
  Report Type: Spontaneous
  Country: US (occurrence: US)
  Receive Date: 20150807
  Receipt Date: 20150807
  Transmission Date: 20151125
  Serious: Yes (Hospitalization, Other)
  Sender: FDA-Public Use
  Company Number: US-DRREDDYS-USA/USA/15/0048430

PATIENT
  Sex: Female
  Weight: 43 kg

DRUGS (2)
  1. LOVASTATIN. [Concomitant]
     Active Substance: LOVASTATIN
     Indication: PRODUCT USED FOR UNKNOWN INDICATION
     Route: 065
  2. LEVOFLOXACIN TABLETS [Suspect]
     Active Substance: LEVOFLOXACIN
     Indication: WOUND TREATMENT
     Route: 048
     Dates: start: 20150505, end: 20150508

REACTIONS (4)
  - Foot deformity [Unknown]
  - Tendon rupture [Unknown]
  - Skin discolouration [Unknown]
  - Tendonitis [Unknown]
